FAERS Safety Report 9780544 (Version 1)
Quarter: 2013Q4

REPORT INFORMATION
  Report Type: Spontaneous
  Country: IT (occurrence: IT)
  Receive Date: 20131224
  Receipt Date: 20131224
  Transmission Date: 20140711
  Serious: Yes (Hospitalization)
  Sender: FDA-Public Use
  Company Number: IT-ROCHE-1322695

PATIENT
  Age: 74 Year
  Sex: Female

DRUGS (2)
  1. XELODA [Suspect]
     Indication: COLON CANCER
     Route: 048
  2. XELODA [Suspect]
     Route: 048

REACTIONS (3)
  - Hyperbilirubinaemia [Recovered/Resolved]
  - Hyperpyrexia [Recovered/Resolved]
  - Hypertransaminasaemia [Recovered/Resolved]
